FAERS Safety Report 25587456 (Version 1)
Quarter: 2025Q3

REPORT INFORMATION
  Report Type: Spontaneous
  Country: US (occurrence: None)
  Receive Date: 20250721
  Receipt Date: 20250721
  Transmission Date: 20251020
  Serious: No
  Sender: FDA-CTU
  Company Number: None

PATIENT
  Age: 50 Year
  Sex: Male
  Weight: 96.75 kg

DRUGS (5)
  1. SIGNIFOR [Suspect]
     Active Substance: PASIREOTIDE DIASPARTATE
     Indication: Acromegaly
     Route: 058
  2. DOSTINEX [Suspect]
     Active Substance: CABERGOLINE
  3. SOMAVERT [Suspect]
     Active Substance: PEGVISOMANT
  4. LANREOTIDE ACETATE [Suspect]
     Active Substance: LANREOTIDE ACETATE
  5. VITAMINS [Concomitant]
     Active Substance: VITAMINS

REACTIONS (2)
  - Loss of personal independence in daily activities [None]
  - Fatigue [None]
